FAERS Safety Report 15322184 (Version 1)
Quarter: 2018Q3

REPORT INFORMATION
  Report Type: Spontaneous
  Country: US (occurrence: US)
  Receive Date: 20180821
  Receipt Date: 20180821
  Transmission Date: 20181010
  Serious: No
  Sender: FDA-Public Use
  Company Number: None

PATIENT
  Age: 64 Year
  Sex: Female
  Weight: 99 kg

DRUGS (16)
  1. ATORVASTATIN [Concomitant]
     Active Substance: ATORVASTATIN
  2. METFORMIN [Concomitant]
     Active Substance: METFORMIN HYDROCHLORIDE
  3. TRAMADOL. [Concomitant]
     Active Substance: TRAMADOL
  4. TRULICITY [Suspect]
     Active Substance: DULAGLUTIDE
     Indication: TYPE 2 DIABETES MELLITUS
     Route: 058
  5. LANTUS SOLOSTAR [Concomitant]
     Active Substance: INSULIN GLARGINE
  6. BENZTROPINE. [Concomitant]
     Active Substance: BENZTROPINE
  7. DULERA [Concomitant]
     Active Substance: FORMOTEROL FUMARATE DIHYDRATE\MOMETASONE FUROATE
  8. LEXAPRO [Concomitant]
     Active Substance: ESCITALOPRAM OXALATE
  9. AMLODIPINE [Concomitant]
     Active Substance: AMLODIPINE BESYLATE
  10. GABAPENTIN. [Concomitant]
     Active Substance: GABAPENTIN
  11. LORAZEPAM. [Concomitant]
     Active Substance: LORAZEPAM
  12. MONTELUKAST [Concomitant]
     Active Substance: MONTELUKAST SODIUM
  13. SENNA PLUS [Concomitant]
     Active Substance: DOCUSATE SODIUM\SENNOSIDES\SENNOSIDES A AND B
  14. ABILIFY [Concomitant]
     Active Substance: ARIPIPRAZOLE
  15. PRAZOSIN. [Concomitant]
     Active Substance: PRAZOSIN
  16. ENALAPRIL [Concomitant]
     Active Substance: ENALAPRIL

REACTIONS (3)
  - Nausea [None]
  - Vomiting [None]
  - Muscle spasms [None]

NARRATIVE: CASE EVENT DATE: 20180820
